FAERS Safety Report 8865193 (Version 1)
Quarter: 2012Q4

REPORT INFORMATION
  Report Type: 
  Country: US (occurrence: US)
  Receive Date: 20121024
  Receipt Date: 20121024
  Transmission Date: 20130627
  Serious: No
  Sender: FDA-Public Use
  Company Number: US-AMGEN-USASP2012001653

PATIENT
  Age: 52 Year
  Sex: Female
  Weight: 54.42 kg

DRUGS (9)
  1. ENBREL [Suspect]
     Indication: PRODUCT USED FOR UNKNOWN INDICATION
     Dosage: 50 mg, qwk
  2. METHOTREXATE [Concomitant]
     Dosage: 2.5 mg, UNK
  3. PREDNISONE [Concomitant]
  4. HYDROXYCHLOROQUINE [Concomitant]
     Dosage: 200 mg, UNK
  5. FOLIC ACID [Concomitant]
     Dosage: 1 mg, UNK
  6. FISH OIL [Concomitant]
  7. CALCIUM + VITAMIN D                /01483701/ [Concomitant]
  8. GLUCOFLEX GLUCOSAMINE AND CHONDROITIN [Concomitant]
  9. ESTROVEN [Concomitant]

REACTIONS (1)
  - Injection site reaction [Unknown]
